FAERS Safety Report 9487639 (Version 2)
Quarter: 2013Q3

REPORT INFORMATION
  Report Type: Spontaneous
  Country: BR (occurrence: BR)
  Receive Date: 20130829
  Receipt Date: 20130925
  Transmission Date: 20140515
  Serious: Yes (Other)
  Sender: FDA-Public Use
  Company Number: BR-ASTRAZENECA-2013SE65576

PATIENT
  Sex: Female
  Weight: 82 kg

DRUGS (10)
  1. CRESTOR [Suspect]
     Indication: HYPERCHOLESTEROLAEMIA
     Route: 048
     Dates: start: 2006, end: 2012
  2. CRESTOR [Suspect]
     Indication: HYPERCHOLESTEROLAEMIA
     Dosage: GENERIC
     Route: 048
     Dates: start: 2012, end: 2012
  3. CRESTOR [Suspect]
     Indication: HYPERCHOLESTEROLAEMIA
     Route: 048
     Dates: start: 2012
  4. ATENOL [Suspect]
     Indication: HYPERTENSION
     Dosage: BIOSSINTETICA MANUFACTURER
     Route: 065
     Dates: start: 201308, end: 20130820
  5. ATENOL [Suspect]
     Indication: HYPERTENSION
     Dosage: MEDLEY MANUFACTURER
     Route: 065
     Dates: start: 2010, end: 201308
  6. ATENOL [Suspect]
     Indication: HYPERTENSION
     Route: 065
  7. INELLARE [Concomitant]
  8. ALLOPURINOL [Concomitant]
  9. UNKNOWN [Concomitant]
     Indication: DEPRESSION
  10. ADDERA [Concomitant]

REACTIONS (8)
  - Hypertension [Recovered/Resolved]
  - Blood cholesterol abnormal [Not Recovered/Not Resolved]
  - Osteoarthritis [Unknown]
  - Tendonitis [Unknown]
  - Vitamin D decreased [Unknown]
  - Arthropathy [Unknown]
  - Nervousness [Unknown]
  - Blood cholesterol increased [Not Recovered/Not Resolved]
